FAERS Safety Report 5627090-2 (Version None)
Quarter: 2008Q1

REPORT INFORMATION
  Report Type: 
  Country: None (occurrence: None)
  Receive Date: 20080124
  Receipt Date: 20070924
  Transmission Date: 20080703
  Serious: Yes (Other)
  Sender: FDA-Public Use
  Company Number: PHEH2006US06622

PATIENT
  Age: 47 Year
  Sex: Female

DRUGS (7)
  1. SANDOSTATIN [Suspect]
     Indication: CARCINOID SYNDROME
     Dosage: 20, 30 MG QMO, INTRAMUSCULAR
     Route: 030
     Dates: start: 20020101, end: 20030101
  2. SANDOSTATIN [Suspect]
     Indication: CARCINOID SYNDROME
     Dosage: 20, 30 MG QMO, INTRAMUSCULAR
     Route: 030
     Dates: start: 20030101, end: 20060101
  3. SANDOSTATIN [Suspect]
     Indication: CARCINOID SYNDROME
     Dosage: 20, 30 MG QMO, INTRAMUSCULAR
     Route: 030
     Dates: start: 20060101, end: 20060301
  4. SANDOSTATIN [Suspect]
     Indication: CARCINOID SYNDROME
     Dosage: 20, 30 MG QMO, INTRAMUSCULAR
     Route: 030
     Dates: start: 20060401
  5. POTASSIUM (POTASSIUM) [Concomitant]
  6. VITAMINS (NO INGREDIENTS/SUBSTANCES) [Concomitant]
  7. TUMS (CALCIUM CARBONATE) [Concomitant]

REACTIONS (17)
  - ANOREXIA [None]
  - ARRHYTHMIA [None]
  - ATRIAL TACHYCARDIA [None]
  - BACK PAIN [None]
  - BLOOD GLUCOSE DECREASED [None]
  - BLOOD POTASSIUM DECREASED [None]
  - CARDIAC FLUTTER [None]
  - DRUG INEFFECTIVE [None]
  - DYSPEPSIA [None]
  - DYSPNOEA EXERTIONAL [None]
  - FEELING COLD [None]
  - HOT FLUSH [None]
  - IRRITABILITY [None]
  - MUSCLE SPASMS [None]
  - NAUSEA [None]
  - PALPITATIONS [None]
  - SYNCOPE [None]
